FAERS Safety Report 19189209 (Version 1)
Quarter: 2021Q2

REPORT INFORMATION
  Report Type: Spontaneous
  Country: US (occurrence: US)
  Receive Date: 20210428
  Receipt Date: 20210428
  Transmission Date: 20210717
  Serious: Yes (Other)
  Sender: FDA-Public Use
  Company Number: NVSC2021US092343

PATIENT
  Age: 17 Year
  Sex: Female

DRUGS (1)
  1. PAZOPANIB [Suspect]
     Active Substance: PAZOPANIB
     Indication: NEUROFIBROSARCOMA
     Dosage: 800 MG, QD (MAXIMUM DOSE)
     Route: 065

REACTIONS (1)
  - Diverticulitis [Unknown]
